FAERS Safety Report 13075927 (Version 1)
Quarter: 2016Q4

REPORT INFORMATION
  Report Type: Spontaneous
  Country: US (occurrence: US)
  Receive Date: 20161230
  Receipt Date: 20161230
  Transmission Date: 20170207
  Serious: Yes (Hospitalization)
  Sender: FDA-Public Use
  Company Number: None

PATIENT
  Age: 70 Year
  Sex: Male

DRUGS (2)
  1. RADIUM RA-223 DICHLORIDE [Suspect]
     Active Substance: RADIUM RA-223 DICHLORIDE
     Indication: PROSTATE CANCER
     Dosage: VARIOUS, IV Q MONTH
     Route: 042
     Dates: start: 20160621, end: 20161108
  2. ENZALUTAMIDE [Suspect]
     Active Substance: ENZALUTAMIDE
     Indication: PROSTATE CANCER
     Route: 048
     Dates: start: 20160621

REACTIONS (5)
  - Central nervous system lesion [None]
  - Metastases to central nervous system [None]
  - Fall [None]
  - Mass [None]
  - Meningioma [None]

NARRATIVE: CASE EVENT DATE: 20161212
